FAERS Safety Report 8502295-1 (Version None)
Quarter: 2012Q3

REPORT INFORMATION
  Report Type: 
  Country: None (occurrence: None)
  Receive Date: 20120711
  Receipt Date: 20110707
  Transmission Date: 20120928
  Serious: No
  Sender: FDA-Public Use
  Company Number: US-COVIDIEN/TYCO HEALTHCARE/MALLINCKRODT-T201101380

PATIENT
  Sex: Male

DRUGS (4)
  1. OXYCODONE HCL [Suspect]
     Indication: PAIN
     Dosage: 30 MG Q4 HOURS
     Dates: start: 20040101, end: 20110702
  2. MORPHINE [Concomitant]
     Dosage: 60 MG, BID
     Route: 048
     Dates: start: 20110706
  3. OXYCODONE HCL [Suspect]
     Dosage: 60 MG Q4 HOURS
     Dates: start: 20110703
  4. MORPHINE [Concomitant]
     Indication: PAIN
     Dosage: 60 MG, BID
     Route: 048
     Dates: end: 20110702

REACTIONS (5)
  - WITHDRAWAL SYNDROME [None]
  - INTENTIONAL DRUG MISUSE [None]
  - VISION BLURRED [None]
  - DRUG EFFECT DECREASED [None]
  - GAIT DISTURBANCE [None]
